FAERS Safety Report 15743273 (Version 1)
Quarter: 2018Q4

REPORT INFORMATION
  Report Type: Spontaneous
  Country: GB (occurrence: GB)
  Receive Date: 20181220
  Receipt Date: 20181220
  Transmission Date: 20190205
  Serious: Yes (Other)
  Sender: FDA-Public Use
  Company Number: GB-TEVA-2018-GB-989309

PATIENT
  Age: 81 Year
  Sex: Female

DRUGS (6)
  1. RISEDRONATE SODIUM. [Concomitant]
     Active Substance: RISEDRONATE SODIUM
  2. PARACETAMOL [Concomitant]
     Active Substance: ACETAMINOPHEN
  3. ACCRETE D3 [Concomitant]
     Active Substance: CALCIUM CARBONATE\CHOLECALCIFEROL
  4. GABAPENTIN. [Suspect]
     Active Substance: GABAPENTIN
     Indication: NEURALGIA
     Dosage: TAKE ONE DAILY ON DAY 1, TWO DAILY ON DAY 2, THREE DAILY ON DAY 3 AND THEREAFTER
     Route: 048
     Dates: start: 20181108, end: 20181112
  5. SOLIFENACIN [Concomitant]
     Active Substance: SOLIFENACIN
  6. CASSIA [Concomitant]

REACTIONS (1)
  - Contusion [Recovered/Resolved]

NARRATIVE: CASE EVENT DATE: 20181111
